FAERS Safety Report 7543269-7 (Version None)
Quarter: 2011Q2

REPORT INFORMATION
  Report Type: 
  Country: None (occurrence: None)
  Receive Date: 20110613
  Receipt Date: 20110606
  Transmission Date: 20111010
  Serious: Yes (Other)
  Sender: FDA-Public Use
  Company Number: US-TEVA-284926USA

PATIENT
  Sex: Female
  Weight: 56.75 kg

DRUGS (1)
  1. PLAN B ONE-STEP [Suspect]
     Dosage: 1.5 MILLIGRAM;
     Route: 048
     Dates: start: 20110602, end: 20110602

REACTIONS (4)
  - ABDOMINAL PAIN UPPER [None]
  - GASTRIC DILATATION [None]
  - MENSTRUATION IRREGULAR [None]
  - VOMITING [None]
